FAERS Safety Report 25180380 (Version 1)
Quarter: 2025Q2

REPORT INFORMATION
  Report Type: Spontaneous
  Country: GB (occurrence: GB)
  Receive Date: 20250409
  Receipt Date: 20250409
  Transmission Date: 20250717
  Serious: Yes (Other)
  Sender: ELI LILLY AND CO
  Company Number: None

PATIENT
  Age: 25 Year
  Sex: Female
  Weight: 96 kg

DRUGS (6)
  1. MOUNJARO [Suspect]
     Active Substance: TIRZEPATIDE
     Indication: Weight control
     Dosage: 2.5 MG, WEEKLY (1/W)
     Route: 065
     Dates: start: 20250228
  2. EPILIM [Concomitant]
     Active Substance: VALPROATE SODIUM
     Indication: Epilepsy
  3. APIXABAN [Concomitant]
     Active Substance: APIXABAN
     Indication: Deep vein thrombosis
  4. LAMOTRIGINE [Concomitant]
     Active Substance: LAMOTRIGINE
     Indication: Epilepsy
  5. DESOGESTREL [Concomitant]
     Active Substance: DESOGESTREL
     Indication: Oral contraception
  6. ZONEGRAN [Concomitant]
     Active Substance: ZONISAMIDE
     Indication: Epilepsy

REACTIONS (1)
  - Diplopia [Unknown]
